FAERS Safety Report 7052689-9 (Version None)
Quarter: 2010Q4

REPORT INFORMATION
  Report Type: 
  Country: None (occurrence: None)
  Receive Date: 20101019
  Receipt Date: 20101007
  Transmission Date: 20110411
  Serious: Yes (Other)
  Sender: FDA-Public Use
  Company Number: US-PFIZER INC-2010072261

PATIENT
  Sex: Female
  Weight: 74.83 kg

DRUGS (23)
  1. LYRICA [Suspect]
     Indication: ARTHRALGIA
     Dosage: UNK
     Route: 048
     Dates: start: 20100301
  2. LYRICA [Suspect]
     Dosage: UNK
     Route: 048
     Dates: start: 20100101
  3. LYRICA [Suspect]
     Indication: MYALGIA
  4. LYRICA [Suspect]
     Indication: TENDON PAIN
  5. LYRICA [Suspect]
     Indication: PAIN
  6. ATIVAN [Concomitant]
     Indication: ANXIETY
     Dosage: 1 MG, AS NEEDED
  7. ATIVAN [Concomitant]
     Dosage: 1 MG, UNK
  8. DIAZEPAM [Concomitant]
     Indication: BLOOD PRESSURE INCREASED
     Dosage: 2 MG, UNK
  9. OMEPRAZOLE [Concomitant]
     Dosage: 20 MG, 2X/DAY
  10. SUDAFED 12 HOUR [Concomitant]
     Dosage: 30 MG, 2X/DAY
  11. PATANOL [Concomitant]
     Dosage: UNK
     Route: 047
  12. PRAVASTATIN [Concomitant]
     Dosage: 80 MG, 1X/DAY
  13. PRAVASTATIN [Concomitant]
     Dosage: 80 MG, UNK
  14. TRAZODONE [Concomitant]
     Dosage: 50MG 2-3 TABLETS ONCE A DAY
  15. CLARITIN [Concomitant]
     Dosage: 10 MG, 1X/DAY
  16. DEPAKOTE [Concomitant]
     Dosage: 250 MG, 2X/DAY
  17. ADVAIR DISKUS 100/50 [Concomitant]
     Dosage: 239/21
  18. VENTOLIN [Concomitant]
     Dosage: 90 UG, AS NEEDED
  19. VICODIN [Concomitant]
     Dosage: 5/500
  20. FOSAMAX [Concomitant]
     Dosage: 70 MG, 1X/DAY
  21. CALCIUM WITH VITAMIN D [Concomitant]
     Dosage: 2000 IU, 2X/DAY
  22. AMBIEN [Concomitant]
     Indication: INSOMNIA
     Dosage: 10 MG ONCE A DAY AS NEEDED
  23. PEPCID [Concomitant]
     Dosage: 20 MG, 2X/DAY

REACTIONS (5)
  - ARTHRALGIA [None]
  - ARTHRITIS [None]
  - BEDRIDDEN [None]
  - INFLUENZA [None]
  - PAIN [None]
